FAERS Safety Report 6737601-1 (Version None)
Quarter: 2010Q2

REPORT INFORMATION
  Report Type: 
  Country: None (occurrence: None)
  Receive Date: 20100519
  Receipt Date: 20100510
  Transmission Date: 20101027
  Serious: Yes (Hospitalization)
  Sender: FDA-Public Use
  Company Number: B0653050A

PATIENT
  Age: 75 Year
  Sex: Male

DRUGS (9)
  1. LANOXIN [Suspect]
  2. SOTALOL HCL [Suspect]
  3. ISOSORBIDE MONONITRATE [Suspect]
  4. NICOUMALONE (FORMULATION UNKNOWN) (NICOUMALONE) [Suspect]
  5. ATORVASTATIN CALCIUM [Suspect]
  6. PERINDOPRIL (FORMULATION UNKNOWN) (PERINDOPRIL) [Suspect]
  7. FUROSEMIDE [Suspect]
  8. AMLODIPINE [Suspect]
  9. AMIODARONE HCL [Suspect]

REACTIONS (9)
  - CARDIOGENIC SHOCK [None]
  - CONTINUOUS HAEMODIAFILTRATION [None]
  - DISORIENTATION [None]
  - DRUG INTERACTION [None]
  - ELECTROCARDIOGRAM QRS COMPLEX PROLONGED [None]
  - ELECTROCARDIOGRAM QT PROLONGED [None]
  - MULTIPLE DRUG OVERDOSE [None]
  - RENAL FAILURE [None]
  - VENTRICULAR ARRHYTHMIA [None]
